FAERS Safety Report 11429799 (Version 1)
Quarter: 2015Q3

REPORT INFORMATION
  Report Type: Spontaneous
  Country: US (occurrence: US)
  Receive Date: 20150828
  Receipt Date: 20150828
  Transmission Date: 20151125
  Serious: No
  Sender: FDA-Public Use
  Company Number: US-ROCHE-1225020

PATIENT
  Age: 57 Year
  Sex: Female

DRUGS (4)
  1. METFORMIN [Concomitant]
     Active Substance: METFORMIN HYDROCHLORIDE
  2. RIBAVIRIN. [Suspect]
     Active Substance: RIBAVIRIN
     Indication: CHRONIC HEPATITIS C
     Dosage: DAILY IN TWO DIVIDED DOSES 600MG MORNING AND 400 MG NIGHT
     Route: 048
     Dates: start: 20130514
  3. PEGASYS [Suspect]
     Active Substance: PEGINTERFERON ALFA-2A
     Indication: CHRONIC HEPATITIS C
     Route: 058
     Dates: start: 20130514
  4. TELAPREVIR [Suspect]
     Active Substance: TELAPREVIR
     Indication: CHRONIC HEPATITIS C
     Route: 065
     Dates: start: 20130514

REACTIONS (15)
  - Arthralgia [Unknown]
  - Chills [Unknown]
  - Dysgeusia [Unknown]
  - Feeling cold [Unknown]
  - Pain in extremity [Unknown]
  - Blood glucose increased [Unknown]
  - Syncope [Unknown]
  - Vomiting [Unknown]
  - Influenza like illness [Unknown]
  - Depression [Unknown]
  - Pyrexia [Unknown]
  - Feeling hot [Unknown]
  - Myalgia [Unknown]
  - Asthenia [Unknown]
  - Dry skin [Unknown]

NARRATIVE: CASE EVENT DATE: 20130515
